FAERS Safety Report 7026725-X (Version None)
Quarter: 2010Q4

REPORT INFORMATION
  Report Type: 
  Country: None (occurrence: None)
  Receive Date: 20101004
  Receipt Date: 20100924
  Transmission Date: 20110411
  Serious: Yes (Hospitalization)
  Sender: FDA-Public Use
  Company Number: US-ROCHE-476216

PATIENT
  Sex: Female
  Weight: 139.1 kg

DRUGS (7)
  1. TOCILIZUMAB [Suspect]
     Indication: RHEUMATOID ARTHRITIS
     Route: 042
     Dates: start: 20060714, end: 20060814
  2. TOCILIZUMAB [Suspect]
     Route: 042
     Dates: start: 20060911, end: 20080701
  3. TOCILIZUMAB [Suspect]
     Route: 042
     Dates: start: 20090220
  4. TOCILIZUMAB [Suspect]
     Dosage: PATIENT PARTICIPATED IN STUDY WA17824
     Route: 042
  5. PLACEBO [Suspect]
     Indication: RHEUMATOID ARTHRITIS
     Dosage: PATIENT PARTICIPATED IN STUDY WA17824
     Route: 048
  6. LEVOTHYROXINE SODIUM [Concomitant]
     Dates: start: 20000101
  7. TYLENOL [Concomitant]
     Dates: start: 19860101

REACTIONS (1)
  - BENIGN LUNG NEOPLASM [None]
